FAERS Safety Report 15555887 (Version 1)
Quarter: 2018Q4

REPORT INFORMATION
  Report Type: Spontaneous
  Country: DE (occurrence: DE)
  Receive Date: 20181026
  Receipt Date: 20181026
  Transmission Date: 20190205
  Serious: Yes (Hospitalization, Other)
  Sender: FDA-Public Use
  Company Number: DE-PROVELL PHARMACEUTICALS-2058089

PATIENT
  Age: 40 Year
  Sex: Female

DRUGS (1)
  1. EUTHYROX [Suspect]
     Active Substance: LEVOTHYROXINE SODIUM
     Indication: AUTOIMMUNE THYROIDITIS

REACTIONS (20)
  - Inappropriate schedule of product administration [None]
  - Gastric ulcer [None]
  - Palpitations [None]
  - Gastrointestinal disorder [None]
  - Panic attack [None]
  - Thyroid function test abnormal [None]
  - Drug intolerance [None]
  - Cardiac disorder [None]
  - Tympanic membrane disorder [None]
  - Diarrhoea [Not Recovered/Not Resolved]
  - Weight decreased [None]
  - Blood pressure increased [None]
  - Dizziness [None]
  - Body temperature increased [None]
  - Anxiety disorder [None]
  - Loss of consciousness [Recovered/Resolved]
  - Ear infection [Not Recovered/Not Resolved]
  - Tachycardia [None]
  - Vertigo positional [None]
  - Abdominal discomfort [Not Recovered/Not Resolved]

NARRATIVE: CASE EVENT DATE: 2014
